FAERS Safety Report 6991858-0 (Version None)
Quarter: 2010Q3

REPORT INFORMATION
  Report Type: 
  Country: None (occurrence: None)
  Receive Date: 20100917
  Receipt Date: 20100907
  Transmission Date: 20110219
  Serious: Yes (Other)
  Sender: FDA-Public Use
  Company Number: CH-PFIZER INC-2010112543

PATIENT
  Age: 65 Year
  Sex: Female
  Weight: 87 kg

DRUGS (2)
  1. AROMASIN [Suspect]
     Indication: BREAST CANCER
     Dosage: 25 MG, ALTERNATE DAY
     Route: 048
     Dates: start: 20100306, end: 20100404
  2. AROMASIN [Suspect]
     Dosage: 25 MG, 1X/DAY
     Route: 048
     Dates: start: 20100405, end: 20100604

REACTIONS (3)
  - HEPATOCELLULAR INJURY [None]
  - LIVER INJURY [None]
  - TRANSAMINASES INCREASED [None]
